FAERS Safety Report 15667948 (Version 1)
Quarter: 2018Q4

REPORT INFORMATION
  Report Type: Spontaneous
  Country: FR (occurrence: FR)
  Receive Date: 20181128
  Receipt Date: 20181128
  Transmission Date: 20190205
  Serious: Yes (Hospitalization)
  Sender: FDA-Public Use
  Company Number: FR-MYLANLABS-2018M1087864

PATIENT
  Age: 77 Year
  Sex: Female

DRUGS (4)
  1. PARACETAMOL/OPIUM [Suspect]
     Active Substance: ACETAMINOPHEN\OPIUM
     Indication: NEURALGIA
     Dosage: PARACETAMOL 500 MG/OPIUM 25 MG
     Route: 065
  2. AMITRIPTYLINE [Suspect]
     Active Substance: AMITRIPTYLINE
     Indication: NEURALGIA
     Route: 065
  3. DULOXETINE. [Suspect]
     Active Substance: DULOXETINE
     Indication: NEURALGIA
     Route: 065
  4. BACLOFEN. [Suspect]
     Active Substance: BACLOFEN
     Indication: NEURALGIA
     Route: 065

REACTIONS (1)
  - Drug ineffective [Unknown]
